FAERS Safety Report 8368066-4 (Version None)
Quarter: 2012Q2

REPORT INFORMATION
  Report Type: 
  Country: None (occurrence: None)
  Receive Date: 20120516
  Receipt Date: 20120503
  Transmission Date: 20120825
  Serious: Yes (Life-Threatening)
  Sender: FDA-Public Use
  Company Number: 2012050061

PATIENT
  Age: 83 Year
  Sex: Female

DRUGS (13)
  1. ZOLPIDEM [Concomitant]
  2. FLOXAPEN (FLUCLOXACILLIN) [Concomitant]
  3. SINTROM [Suspect]
     Indication: ATRIAL FLUTTER
     Dosage: SEE IMAGE
     Route: 048
     Dates: end: 20120220
  4. SINTROM [Suspect]
     Indication: ATRIAL FIBRILLATION
     Dosage: SEE IMAGE
     Route: 048
     Dates: end: 20120220
  5. LAXOBERON (SODIUM PICOSULFATE) [Concomitant]
  6. CITALOPRAM HYDROBROMIDE [Suspect]
     Indication: DEPRESSION
     Dosage: PRIOR TAKING 5 MG AT HOME (10 MG,1 IN 1 D),ORAL
     Route: 048
  7. MORPHINE HCL (MORPHINE HYDROCHLORIDE) [Concomitant]
  8. ZOFRAN [Suspect]
     Indication: VOMITING
     Dosage: 12 MG (4 MG,1 IN 8 HR),INTRAVENOUS DRIP
     Route: 041
     Dates: start: 20120215, end: 20120304
  9. ZOFRAN [Suspect]
     Indication: NAUSEA
     Dosage: 12 MG (4 MG,1 IN 8 HR),INTRAVENOUS DRIP
     Route: 041
     Dates: start: 20120215, end: 20120304
  10. DIGOXIN [Concomitant]
  11. LORAZEPAM [Concomitant]
  12. CALCIMAGON D3 (COLECALCIFEROL, CALCIUM CARBONATE) [Concomitant]
  13. TORSEMIDE [Suspect]
     Dosage: 10 MG (10 MG,1 IN 1 D),ORAL
     Route: 048

REACTIONS (9)
  - ANXIETY [None]
  - SPONDYLITIS [None]
  - VOMITING [None]
  - CONSTIPATION [None]
  - SLEEP DISORDER [None]
  - INTERNATIONAL NORMALISED RATIO INCREASED [None]
  - BACTERAEMIA [None]
  - ANTIBIOTIC RESISTANT STAPHYLOCOCCUS TEST POSITIVE [None]
  - GASTROENTERITIS VIRAL [None]
